FAERS Safety Report 18574400 (Version 1)
Quarter: 2020Q4

REPORT INFORMATION
  Report Type: Report from Study
  Country: US (occurrence: US)
  Receive Date: 20201203
  Receipt Date: 20201203
  Transmission Date: 20210114
  Serious: Yes (Other)
  Sender: FDA-Public Use
  Company Number: US-GW PHARMA-201807USGW0268

PATIENT

DRUGS (7)
  1. SABRIL [Concomitant]
     Active Substance: VIGABATRIN
     Indication: TUBEROUS SCLEROSIS COMPLEX
     Dosage: 1500 MILLIGRAM, QAM 1500 QPM
     Route: 048
     Dates: start: 20170928
  2. DIASTAT ACUDIAL [Concomitant]
     Active Substance: DIAZEPAM
     Indication: SEIZURE
  3. DEPAKENE [Concomitant]
     Active Substance: VALPROIC ACID
     Indication: TUBEROUS SCLEROSIS COMPLEX
     Dosage: 7 MILLILITER, TID
     Route: 048
     Dates: start: 20170419
  4. DEPAKENE [Concomitant]
     Active Substance: VALPROIC ACID
     Dosage: 8 MILLILITER, TID
     Route: 065
  5. AFINITOR DISPERZ [Concomitant]
     Active Substance: EVEROLIMUS
     Indication: PRODUCT USED FOR UNKNOWN INDICATION
     Dosage: 1 TAB ONCE DAILY FOR 1 WEEK, 2 TABS ONCE DAILY FOR 1 WEEK, 3 TABS ONCE DAILY ONGOING
     Route: 065
  6. EPIDIOLEX [Suspect]
     Active Substance: CANNABIDIOL
     Indication: TUBEROUS SCLEROSIS COMPLEX
     Dosage: 25 MG/KG, 210 MILLIGRAM, BID
     Route: 048
     Dates: start: 20180706, end: 20180720
  7. DIASTAT ACUDIAL [Concomitant]
     Active Substance: DIAZEPAM
     Indication: SEIZURE
     Dosage: 7.5 MILLIGRAM, PRN
     Route: 054
     Dates: start: 20160801

REACTIONS (1)
  - Rash erythematous [Recovered/Resolved]

NARRATIVE: CASE EVENT DATE: 20180718
